FAERS Safety Report 7893802-0 (Version None)
Quarter: 2011Q4

REPORT INFORMATION
  Report Type: 
  Country: None (occurrence: None)
  Receive Date: 20111104
  Receipt Date: 20111027
  Transmission Date: 20120403
  Serious: Yes (Hospitalization)
  Sender: FDA-Public Use
  Company Number: US-ABBOTT-11P-163-0869311-00

PATIENT
  Age: 58 Year
  Sex: Male

DRUGS (6)
  1. PLAQUENIL [Concomitant]
     Indication: ARTHRITIS
  2. PROCARDIA [Concomitant]
     Indication: CHEST PAIN
  3. TOPROL-XL [Concomitant]
     Indication: BLOOD PRESSURE
     Dates: start: 20111001
  4. HUMIRA [Suspect]
     Indication: ANKYLOSING SPONDYLITIS
     Dates: start: 20110512
  5. PROCARDIA [Concomitant]
     Indication: HYPERTENSION
  6. PREDNISONE [Concomitant]
     Indication: ARTHRITIS

REACTIONS (6)
  - OEDEMA PERIPHERAL [None]
  - MYOCARDIAL INFARCTION [None]
  - CHEST PAIN [None]
  - ERYTHEMA [None]
  - THROMBOSIS [None]
  - SWELLING FACE [None]
